FAERS Safety Report 11225544 (Version 1)
Quarter: 2015Q2

REPORT INFORMATION
  Report Type: Spontaneous
  Country: US (occurrence: US)
  Receive Date: 20150629
  Receipt Date: 20150629
  Transmission Date: 20150821
  Serious: Yes (Hospitalization, Other)
  Sender: FDA-Public Use
  Company Number: US-GLAXOSMITHKLINE-US2015092228

PATIENT
  Age: 21 Year
  Sex: Male

DRUGS (6)
  1. LAMICTAL [Suspect]
     Active Substance: LAMOTRIGINE
     Indication: BIPOLAR DISORDER
     Dosage: 25 MG, BID
     Route: 048
  2. GABAPENTIN. [Concomitant]
     Active Substance: GABAPENTIN
  3. REMERON [Concomitant]
     Active Substance: MIRTAZAPINE
  4. QUETIAPINE [Concomitant]
     Active Substance: QUETIAPINE
  5. BENADRYL (USA) [Concomitant]
  6. LEXAPRO [Concomitant]
     Active Substance: ESCITALOPRAM OXALATE

REACTIONS (4)
  - Mental status changes [Unknown]
  - Tangentiality [Unknown]
  - Intentional overdose [Unknown]
  - Flight of ideas [Unknown]

NARRATIVE: CASE EVENT DATE: 20150625
